FAERS Safety Report 15704482 (Version 1)
Quarter: 2018Q4

REPORT INFORMATION
  Report Type: Spontaneous
  Country: US (occurrence: US)
  Receive Date: 20181210
  Receipt Date: 20181210
  Transmission Date: 20190205
  Serious: No
  Sender: FDA-Public Use
  Company Number: US-JNJFOC-20181125195

PATIENT
  Age: 47 Year
  Sex: Female
  Weight: 83.92 kg

DRUGS (2)
  1. TOPAMAX [Suspect]
     Active Substance: TOPIRAMATE
     Indication: WEIGHT DECREASED
     Route: 048
     Dates: start: 20180719, end: 20180731
  2. PHENTERMINE. [Suspect]
     Active Substance: PHENTERMINE
     Indication: WEIGHT DECREASED
     Route: 048
     Dates: start: 20180719, end: 20180731

REACTIONS (10)
  - Off label use [Unknown]
  - Therapeutic response unexpected [Unknown]
  - Energy increased [Unknown]
  - Nausea [Unknown]
  - Thinking abnormal [Unknown]
  - Disorientation [Unknown]
  - Feeling jittery [Unknown]
  - Vision blurred [Not Recovered/Not Resolved]
  - Product use in unapproved indication [Unknown]
  - Astigmatism [Unknown]

NARRATIVE: CASE EVENT DATE: 201807
